FAERS Safety Report 8966709 (Version 4)
Quarter: 2013Q3

REPORT INFORMATION
  Report Type: Report from Study
  Country: FI (occurrence: FI)
  Receive Date: 20121214
  Receipt Date: 20130719
  Transmission Date: 20140515
  Serious: Yes (Hospitalization, Other)
  Sender: FDA-Public Use
  Company Number: FI-ELI_LILLY_AND_COMPANY-FI201212002030

PATIENT
  Sex: Female

DRUGS (16)
  1. TERIPARATIDE [Suspect]
     Indication: OSTEOPOROSIS
     Dosage: 20 UG, QD
     Route: 058
     Dates: start: 20111208
  2. MAREVAN [Suspect]
     Dosage: UNK, UNKNOWN
     Route: 065
  3. KLEXANE [Suspect]
     Dosage: UNK, UNKNOWN
     Route: 065
  4. PREDNISOLON [Concomitant]
     Indication: RHEUMATIC DISORDER
     Dosage: 7.5 MG, QD
  5. FURESIS [Concomitant]
     Indication: HYPERTENSION
     Dosage: UNK
  6. ATACAND [Concomitant]
     Indication: HYPERTENSION
     Dosage: UNK
  7. PANADOL [Concomitant]
     Indication: PAIN
     Dosage: UNK
  8. CALCIUM + VITAMIN D [Concomitant]
     Indication: SUPPLEMENTATION THERAPY
     Dosage: UNK
  9. REUMACON [Concomitant]
     Indication: RHEUMATIC DISORDER
     Dosage: UNK
  10. ZOLT [Concomitant]
     Dosage: UNK
  11. ALLONOL [Concomitant]
  12. GASTRIX [Concomitant]
  13. VAGIFEM [Concomitant]
  14. VISCOTEARS [Concomitant]
  15. PARATABS [Concomitant]
  16. ENBREL [Concomitant]

REACTIONS (11)
  - Cardiac disorder [Unknown]
  - Deep vein thrombosis [Not Recovered/Not Resolved]
  - Haematoma [Unknown]
  - Hypovolaemia [Unknown]
  - Pyelonephritis [Unknown]
  - Escherichia bacteraemia [Unknown]
  - Feeling abnormal [Not Recovered/Not Resolved]
  - Abdominal pain upper [Not Recovered/Not Resolved]
  - Dizziness [Not Recovered/Not Resolved]
  - Fatigue [Not Recovered/Not Resolved]
  - Contusion [Unknown]
